FAERS Safety Report 19891635 (Version 1)
Quarter: 2021Q3

REPORT INFORMATION
  Report Type: Spontaneous
  Country: IT (occurrence: IT)
  Receive Date: 20210928
  Receipt Date: 20210928
  Transmission Date: 20211014
  Serious: Yes (Hospitalization, Other)
  Sender: FDA-Public Use
  Company Number: IT-MYLANLABS-2021M1065371

PATIENT
  Age: 43 Year
  Sex: Female

DRUGS (5)
  1. FLUOROURACIL. [Suspect]
     Active Substance: FLUOROURACIL
     Indication: GASTRIC NEOPLASM
     Dosage: UNK UNK, UNKNOWN
     Route: 065
     Dates: start: 202009
  2. PACLITAXEL. [Suspect]
     Active Substance: PACLITAXEL
     Indication: GASTRIC NEOPLASM
     Dosage: UNK UNK, UNKNOWN
     Route: 065
     Dates: start: 201912, end: 202005
  3. FOLINIC ACID [Suspect]
     Active Substance: LEUCOVORIN
     Indication: GASTRIC NEOPLASM
     Dosage: UNK UNK, UNKNOWN
     Route: 065
     Dates: start: 202009
  4. IRINOTECAN [Suspect]
     Active Substance: IRINOTECAN
     Indication: GASTRIC NEOPLASM
     Dosage: UNK UNK, UNKNOWN
     Route: 065
     Dates: start: 202009
  5. RAMUCIRUMAB [Suspect]
     Active Substance: RAMUCIRUMAB
     Indication: GASTRIC NEOPLASM
     Dosage: UNK UNK, UNKNOWN
     Route: 065
     Dates: start: 201912

REACTIONS (9)
  - Neutropenia [Unknown]
  - Weight decreased [Unknown]
  - Asthenia [Unknown]
  - Malignant neoplasm progression [Unknown]
  - Neurotoxicity [Unknown]
  - Eastern Cooperative Oncology Group performance status worsened [Unknown]
  - Diarrhoea [Unknown]
  - Alopecia [Unknown]
  - Neuropathy peripheral [Unknown]

NARRATIVE: CASE EVENT DATE: 202009
